FAERS Safety Report 4523184-3 (Version None)
Quarter: 2004Q4

REPORT INFORMATION
  Report Type: 
  Country: None (occurrence: None)
  Receive Date: 20041201
  Receipt Date: 20041119
  Transmission Date: 20050328
  Serious: Yes (Hospitalization)
  Sender: FDA-Public Use
  Company Number: 2004-03702

PATIENT
  Age: 73 Year
  Sex: Male

DRUGS (1)
  1. IMMUCYST    (BCG - IT (COMMAUGHT)), AVENTIS PASTEUR LTD. [Suspect]
     Indication: BLADDER CANCER
     Dosage: 81 MG
     Route: 043
     Dates: start: 20040910

REACTIONS (5)
  - DRUG INEFFECTIVE [None]
  - KERATITIS [None]
  - REITER'S SYNDROME [None]
  - RHINITIS [None]
  - STOMATITIS [None]
